FAERS Safety Report 5747173-6 (Version None)
Quarter: 2008Q2

REPORT INFORMATION
  Report Type: 
  Country: None (occurrence: None)
  Receive Date: 20080519
  Receipt Date: 20080430
  Transmission Date: 20081010
  Serious: Yes (Other)
  Sender: FDA-Public Use
  Company Number: 80541

PATIENT
  Age: 30 Year
  Sex: Female
  Weight: 56.6996 kg

DRUGS (1)
  1. HEADACHE RELIEF TABLETS/PERRIGO [Suspect]
     Indication: HEADACHE
     Dosage: BID ORALLY
     Route: 048
     Dates: start: 20070102, end: 20070109

REACTIONS (11)
  - ADVERSE REACTION [None]
  - BACK PAIN [None]
  - CEREBROVASCULAR ACCIDENT [None]
  - EXPIRED DRUG ADMINISTERED [None]
  - FEELING JITTERY [None]
  - LIVER INJURY [None]
  - MUSCLE SPASMS [None]
  - NO THERAPEUTIC RESPONSE [None]
  - TREMOR [None]
  - UPPER RESPIRATORY TRACT INFECTION [None]
  - VERTIGO [None]
